FAERS Safety Report 8271164-7 (Version None)
Quarter: 2012Q2

REPORT INFORMATION
  Report Type: 
  Country: None (occurrence: None)
  Receive Date: 20120410
  Receipt Date: 20120329
  Transmission Date: 20120825
  Serious: Yes (Other)
  Sender: FDA-Public Use
  Company Number: AU-PFIZER INC-2012080931

PATIENT
  Age: 63 Year
  Sex: Female
  Weight: 68.8 kg

DRUGS (5)
  1. OXYCODONE HCL [Concomitant]
     Indication: CHEST PAIN
     Dosage: UNK
     Dates: start: 20120109
  2. PHENYTOIN [Concomitant]
     Indication: PROPHYLAXIS
     Dosage: UNK
     Dates: start: 20111210
  3. DEXAMETHASONE [Concomitant]
     Indication: METASTASES TO CENTRAL NERVOUS SYSTEM
     Dosage: UNK
     Dates: start: 20111210
  4. NEXIUM [Concomitant]
     Indication: PROPHYLAXIS AGAINST GASTROINTESTINAL ULCER
     Dosage: UNK
     Dates: start: 20111230
  5. CRIZOTINIB [Suspect]
     Indication: NON-SMALL CELL LUNG CANCER
     Dosage: 250 MG, 2X/DAY
     Route: 048
     Dates: start: 20110607, end: 20120328

REACTIONS (1)
  - DEEP VEIN THROMBOSIS [None]
